APPROVED DRUG PRODUCT: LEVONORGESTREL
Active Ingredient: LEVONORGESTREL
Strength: 1.5MG
Dosage Form/Route: TABLET;ORAL
Application: A207044 | Product #001
Applicant: GLENMARK PHARMACEUTICALS LTD
Approved: Mar 25, 2016 | RLD: No | RS: No | Type: OTC